FAERS Safety Report 5717599-5 (Version None)
Quarter: 2008Q2

REPORT INFORMATION
  Report Type: 
  Country: None (occurrence: None)
  Receive Date: 20080425
  Receipt Date: 20070925
  Transmission Date: 20081010
  Serious: Yes (Life-Threatening, Hospitalization)
  Sender: FDA-Public Use
  Company Number: NL-ASTRAZENECA-2007SE05384

PATIENT
  Age: 19731 Day
  Sex: Male

DRUGS (9)
  1. SELOCOMB ZOC [Suspect]
     Indication: HYPERTENSION
     Dosage: 200+25 MG ONCE DAILY
     Route: 048
     Dates: start: 20050401
  2. TAMSULOSIN HCL [Interacting]
     Indication: BENIGN PROSTATIC HYPERPLASIA
     Route: 048
     Dates: start: 20070207, end: 20070207
  3. ALFACALCIDOL [Concomitant]
     Route: 048
  4. TOLBUTAMIDE [Concomitant]
     Route: 048
  5. MAGNESIUM HYDROXIDE TAB [Concomitant]
     Route: 048
  6. CARBASALATE CALCIUM [Concomitant]
     Route: 048
  7. SILDENAFIL CITRATE [Concomitant]
     Route: 048
  8. LISINOPRIL [Concomitant]
     Route: 048
  9. SIMVASTATIN [Concomitant]
     Route: 048

REACTIONS (2)
  - BLOOD PRESSURE DECREASED [None]
  - DRUG INTERACTION [None]
